FAERS Safety Report 16177279 (Version 1)
Quarter: 2019Q2

REPORT INFORMATION
  Report Type: Report from Study
  Country: FR (occurrence: FR)
  Receive Date: 20190410
  Receipt Date: 20190410
  Transmission Date: 20190711
  Serious: Yes (Other)
  Sender: FDA-Public Use
  Company Number: FR-ROCHE-2297353

PATIENT

DRUGS (4)
  1. BEVACIZUMAB. [Suspect]
     Active Substance: BEVACIZUMAB
     Indication: NEOPLASM MALIGNANT
     Route: 065
  2. DOXORUBICIN [Suspect]
     Active Substance: DOXORUBICIN
     Indication: NEOPLASM MALIGNANT
     Dosage: 1.5 MG/M2 OF BODY SURFACE IN 50 ML OF NACL 0.9%
     Route: 065
  3. CISPLATIN. [Suspect]
     Active Substance: CISPLATIN
     Indication: NEOPLASM MALIGNANT
     Dosage: 7.5 MG/M2 OF BODY SURFACE IN 150ML OF NACL 0.9%
     Route: 065
  4. OXALIPLATIN. [Suspect]
     Active Substance: OXALIPLATIN
     Indication: NEOPLASM MALIGNANT
     Dosage: 92 MG/M2 OF BODY SURFACE IN 150 ML OF NACL 0.9%
     Route: 065

REACTIONS (5)
  - Infection [Unknown]
  - Drug hypersensitivity [Unknown]
  - Haematoma [Unknown]
  - Intestinal obstruction [Unknown]
  - Pain [Unknown]
